FAERS Safety Report 16025852 (Version 1)
Quarter: 2019Q1

REPORT INFORMATION
  Report Type: Spontaneous
  Country: MY (occurrence: MY)
  Receive Date: 20190302
  Receipt Date: 20190302
  Transmission Date: 20190418
  Serious: Yes (Other)
  Sender: FDA-Public Use
  Company Number: MY-SUN PHARMACEUTICAL INDUSTRIES LTD-2019R1-200660

PATIENT
  Age: 41 Year
  Sex: Male

DRUGS (1)
  1. ROZIDAL [Suspect]
     Active Substance: RISPERIDONE
     Indication: SCHIZOPHRENIA
     Dosage: UNK
     Route: 048

REACTIONS (4)
  - Gaze palsy [Not Recovered/Not Resolved]
  - Movement disorder [Not Recovered/Not Resolved]
  - Tremor [Not Recovered/Not Resolved]
  - Akathisia [Not Recovered/Not Resolved]
